FAERS Safety Report 5975740-3 (Version None)
Quarter: 2008Q4

REPORT INFORMATION
  Report Type: 
  Country: None (occurrence: None)
  Receive Date: 20081124
  Receipt Date: 20080124
  Transmission Date: 20090506
  Serious: Yes (Other)
  Sender: FDA-Public Use
  Company Number: US-WYE-H02295508

PATIENT
  Sex: Female

DRUGS (1)
  1. ZOSYN [Suspect]
     Indication: INFECTION
     Dosage: ^3.75 MG^ ONCE DAILY, INTRAVENOUS
     Route: 042
     Dates: start: 20080101

REACTIONS (2)
  - RASH [None]
  - RENAL FAILURE [None]
